FAERS Safety Report 22306056 (Version 2)
Quarter: 2023Q2

REPORT INFORMATION
  Report Type: Report from Study
  Country: US (occurrence: US)
  Receive Date: 20230511
  Receipt Date: 20230530
  Transmission Date: 20230721
  Serious: Yes (Hospitalization)
  Sender: FDA-Public Use
  Company Number: US-ABBVIE-4761639

PATIENT
  Sex: Male

DRUGS (2)
  1. DUOPA [Suspect]
     Active Substance: CARBIDOPA\LEVODOPA
     Indication: Parkinson^s disease
     Dosage: 1 CASSETTE VIA PEG-J FOR UP TO 16 HOURS EACH DAY. MORNING DOSE: 15ML; ?CONTINUOUS DOSE: 4.8ML/HOU...
     Route: 050
     Dates: start: 202205
  2. DUOPA [Suspect]
     Active Substance: CARBIDOPA\LEVODOPA

REACTIONS (3)
  - Patella fracture [Unknown]
  - Fall [Unknown]
  - Unevaluable event [Unknown]
